FAERS Safety Report 4472531-X (Version None)
Quarter: 2004Q4

REPORT INFORMATION
  Report Type: 
  Country: None (occurrence: None)
  Receive Date: 20041007
  Receipt Date: 20041005
  Transmission Date: 20050328
  Serious: Yes (Other)
  Sender: FDA-Public Use
  Company Number: 163-20785-04090055

PATIENT
  Age: 49 Year
  Sex: Female

DRUGS (1)
  1. THALOMID [Suspect]
     Indication: METASTATIC RENAL CELL CARCINOMA
     Dosage: 200 MG, DAILY, ORAL
     Route: 048
     Dates: start: 20040223

REACTIONS (5)
  - BLOOD FOLLICLE STIMULATING HORMONE INCREASED [None]
  - BLOOD HUMAN CHORIONIC GONADOTROPIN POSITIVE [None]
  - BLOOD LUTEINISING HORMONE INCREASED [None]
  - POLYCYTHAEMIA [None]
  - PREGNANCY TEST URINE POSITIVE [None]
